FAERS Safety Report 23130995 (Version 2)
Quarter: 2024Q2

REPORT INFORMATION
  Report Type: Report from Study
  Country: GB (occurrence: GB)
  Receive Date: 20231031
  Receipt Date: 20240412
  Transmission Date: 20240715
  Serious: Yes (Other)
  Sender: FDA-Public Use
  Company Number: GB-SANDOZ-SDZ2023GB030540

PATIENT
  Sex: Male

DRUGS (1)
  1. OMNITROPE [Suspect]
     Active Substance: SOMATROPIN
     Indication: Hypopituitarism
     Dosage: 0.40 MG, QD
     Route: 058
     Dates: start: 20230816

REACTIONS (5)
  - Surgery [Unknown]
  - Fatigue [Unknown]
  - Product dose omission issue [Unknown]
  - Product storage error [Unknown]
  - Poor quality product administered [Unknown]
